FAERS Safety Report 20135003 (Version 16)
Quarter: 2022Q4

REPORT INFORMATION
  Report Type: Spontaneous
  Country: US (occurrence: US)
  Receive Date: 20211201
  Receipt Date: 20221223
  Transmission Date: 20230113
  Serious: No
  Sender: FDA-Public Use
  Company Number: US-GLAXOSMITHKLINE-US2021AMR246193

PATIENT
  Age: 58 Year
  Sex: Female

DRUGS (3)
  1. ZEJULA [Suspect]
     Active Substance: NIRAPARIB
     Indication: Ovarian cancer
     Dosage: 200 MG, QD
     Dates: start: 202111
  2. ZEJULA [Suspect]
     Active Substance: NIRAPARIB
     Dosage: 100 MG, QD
     Dates: start: 202201
  3. ZEJULA [Suspect]
     Active Substance: NIRAPARIB
     Dosage: 100 MG, QD
     Dates: start: 202202

REACTIONS (15)
  - Fatigue [Not Recovered/Not Resolved]
  - Heart rate increased [Not Recovered/Not Resolved]
  - Insomnia [Unknown]
  - Blood pressure increased [Not Recovered/Not Resolved]
  - Vomiting [Unknown]
  - Anaemia [Unknown]
  - Palpitations [Recovering/Resolving]
  - Asthenia [Unknown]
  - Middle insomnia [Unknown]
  - Loss of personal independence in daily activities [Recovering/Resolving]
  - Blood pressure diastolic increased [Unknown]
  - Blood magnesium decreased [Unknown]
  - Blood potassium decreased [Unknown]
  - Palpitations [Recovering/Resolving]
  - Carbohydrate antigen 125 increased [Unknown]

NARRATIVE: CASE EVENT DATE: 20211213
